FAERS Safety Report 7704112-6 (Version None)
Quarter: 2011Q3

REPORT INFORMATION
  Report Type: 
  Country: None (occurrence: None)
  Receive Date: 20110823
  Receipt Date: 20110804
  Transmission Date: 20111222
  Serious: No
  Sender: FDA-Public Use
  Company Number: US-B.I. PHARMACEUTICALS,INC./RIDGEFIELD-2011-BP-19221BP

PATIENT
  Age: 72 Year
  Sex: Female
  Weight: 96.97 kg

DRUGS (5)
  1. PRADAXA [Suspect]
     Indication: ATRIAL FIBRILLATION
     Dosage: 300 MG
     Route: 048
     Dates: start: 20110328, end: 20110414
  2. CARAFATE [Concomitant]
     Dosage: 400 MG
     Route: 048
  3. ASPIRIN [Concomitant]
     Dosage: 162 MG
     Route: 048
  4. FUROSEMIDE [Concomitant]
     Dosage: 40 MG
     Route: 048
  5. ZANTAC [Concomitant]
     Dosage: 300 MG
     Route: 048

REACTIONS (3)
  - CONTUSION [None]
  - ABDOMINAL DISCOMFORT [None]
  - CONDITION AGGRAVATED [None]
